FAERS Safety Report 16157823 (Version 1)
Quarter: 2019Q2

REPORT INFORMATION
  Report Type: Spontaneous
  Country: FR (occurrence: FR)
  Receive Date: 20190404
  Receipt Date: 20190404
  Transmission Date: 20190711
  Serious: Yes (Other)
  Sender: FDA-Public Use
  Company Number: FR-TEVA-2019-FR-1032580

PATIENT
  Age: 89 Year
  Sex: Female
  Weight: 64 kg

DRUGS (14)
  1. CANDESARTAN CILEXETIL. [Suspect]
     Active Substance: CANDESARTAN CILEXETIL
     Indication: HYPERTENSION
     Dosage: 4 MILLIGRAM DAILY;
     Route: 048
  2. ALPRAZOLAM. [Concomitant]
     Active Substance: ALPRAZOLAM
  3. GAVISCON [Concomitant]
     Active Substance: ALUMINUM HYDROXIDE\MAGNESIUM CARBONATE
  4. RILMENIDINE [Concomitant]
     Active Substance: RILMENIDINE
  5. EUPRESSYL [Concomitant]
     Active Substance: URAPIDIL
  6. UVEDOSE 100 000 UI, SOLUTION BUVABLE EN AMPOULE [Concomitant]
     Active Substance: CHOLECALCIFEROL
     Dosage: IN AMPOULE
  7. SPAGULAX MUCILAGE PUR, GRANUL?S [Concomitant]
  8. ESCITALOPRAM [Suspect]
     Active Substance: ESCITALOPRAM OXALATE
     Indication: DEPRESSION
     Dosage: 10 MILLIGRAM DAILY;
     Route: 048
     Dates: start: 20170104, end: 20190222
  9. FUROSEMIDE. [Suspect]
     Active Substance: FUROSEMIDE
     Indication: HYPERTENSION
     Dosage: 10 MILLIGRAM DAILY;
     Route: 048
  10. LEVOTHYROX [Concomitant]
     Active Substance: LEVOTHYROXINE
  11. VOLTARENE EMULGEL 1 %, GEL [Concomitant]
     Active Substance: DICLOFENAC DIETHYLAMINE
  12. LOXEN L P 50 MG, G?LULE ? LIB?RATION PROLONG?E [Concomitant]
     Active Substance: NICARDIPINE HYDROCHLORIDE
  13. DOLIPRANE [Concomitant]
     Active Substance: ACETAMINOPHEN
  14. PANTOPRAZOLE [Suspect]
     Active Substance: PANTOPRAZOLE
     Indication: GASTROOESOPHAGEAL REFLUX DISEASE
     Dosage: 40 MILLIGRAM DAILY;
     Route: 048
     Dates: start: 20170104, end: 20190222

REACTIONS (2)
  - Hyponatraemia [Recovered/Resolved]
  - Inappropriate antidiuretic hormone secretion [Recovered/Resolved]

NARRATIVE: CASE EVENT DATE: 20190214
